FAERS Safety Report 13080586 (Version 2)
Quarter: 2017Q1

REPORT INFORMATION
  Report Type: Spontaneous
  Country: FI (occurrence: FI)
  Receive Date: 20170103
  Receipt Date: 20170214
  Transmission Date: 20170428
  Serious: Yes (Hospitalization)
  Sender: FDA-Public Use
  Company Number: FI-JNJFOC-20161227004

PATIENT
  Age: 75 Year
  Sex: Female
  Weight: 46 kg

DRUGS (19)
  1. XARELTO [Suspect]
     Active Substance: RIVAROXABAN
     Indication: CEREBROVASCULAR ACCIDENT PROPHYLAXIS
     Route: 048
     Dates: end: 20161217
  2. KALCIPOS-D [Concomitant]
     Active Substance: CALCIUM CARBONATE\CHOLECALCIFEROL
     Route: 065
  3. EMGESAN [Concomitant]
     Dosage: DOSAGE: UNKNOWN
     Route: 065
  4. ORLOC [Concomitant]
     Active Substance: BISOPROLOL FUMARATE
     Route: 065
  5. SIMVASTATIN ACTAVIS [Concomitant]
     Active Substance: SIMVASTATIN
     Route: 065
  6. XARELTO [Suspect]
     Active Substance: RIVAROXABAN
     Indication: ATRIAL FIBRILLATION
     Route: 048
     Dates: end: 20161217
  7. DUROGESIC [Concomitant]
     Active Substance: FENTANYL
  8. FOLVITE [Concomitant]
     Active Substance: FOLIC ACID
     Route: 065
  9. METHOTREXATE. [Concomitant]
     Active Substance: METHOTREXATE
  10. TRIPTYL [Concomitant]
     Active Substance: AMITRIPTYLINE HYDROCHLORIDE
     Route: 065
  11. DINIT [Concomitant]
     Active Substance: ISOSORBIDE DINITRATE
     Dosage: DOSAGE: UNKNOWN
     Route: 065
  12. ZOLEDRONIC ACID [Concomitant]
     Active Substance: ZOLEDRONIC ACID
     Route: 065
  13. OXYNORM [Concomitant]
     Active Substance: OXYCODONE HYDROCHLORIDE
     Route: 065
  14. PAMOL [Concomitant]
     Active Substance: ACETAMINOPHEN
     Route: 065
  15. PREDNISOLONE. [Concomitant]
     Active Substance: PREDNISOLONE
     Route: 065
  16. FERROUS GLYCINE SULFATE [Concomitant]
     Active Substance: FERROUS GLYCINE SULFATE
     Route: 065
  17. LAMISIL [Concomitant]
     Active Substance: TERBINAFINE HYDROCHLORIDE
     Dosage: DOSAGE: UNKNOWN
     Route: 065
  18. OXIKLORIN [Concomitant]
     Active Substance: HYDROXYCHLOROQUINE SULFATE
     Route: 065
  19. LAXOBERON [Concomitant]
     Active Substance: SODIUM PICOSULFATE
     Dosage: DOSAGE: UNKNOWN
     Route: 065

REACTIONS (2)
  - Cerebral haemorrhage [Recovering/Resolving]
  - Aphasia [Recovering/Resolving]

NARRATIVE: CASE EVENT DATE: 20161216
